FAERS Safety Report 20832274 (Version 1)
Quarter: 2022Q2

REPORT INFORMATION
  Report Type: 
  Country: None (occurrence: None)
  Receive Date: 20220516
  Receipt Date: 20220516
  Transmission Date: 20220720
  Serious: No
  Sender: FDA-Public Use
  Company Number: DK-ROCHE-3093938

PATIENT

DRUGS (1)
  1. ATEZOLIZUMAB [Suspect]
     Active Substance: ATEZOLIZUMAB

REACTIONS (2)
  - Pyrexia [None]
  - Phlebitis infective [None]

NARRATIVE: CASE EVENT DATE: 20220325
